FAERS Safety Report 6921675-9 (Version None)
Quarter: 2010Q3

REPORT INFORMATION
  Report Type: 
  Country: None (occurrence: None)
  Receive Date: 20100812
  Receipt Date: 20100804
  Transmission Date: 20110219
  Serious: Yes (Other)
  Sender: FDA-Public Use
  Company Number: GB-BAUSCH-2010BL004299

PATIENT
  Age: 43 Year
  Sex: Male

DRUGS (2)
  1. PREDNISOLONE [Suspect]
     Indication: CROHN'S DISEASE
     Route: 048
     Dates: start: 20100101, end: 20100101
  2. PREDOCOL [Suspect]
     Indication: CROHN'S DISEASE
     Route: 048
     Dates: start: 20100101

REACTIONS (1)
  - CHORIORETINOPATHY [None]
